FAERS Safety Report 10561840 (Version 1)
Quarter: 2014Q4

REPORT INFORMATION
  Report Type: Report from Study
  Country: GB (occurrence: GB)
  Receive Date: 20141104
  Receipt Date: 20141104
  Transmission Date: 20150529
  Serious: Yes (Hospitalization)
  Sender: FDA-Public Use
  Company Number: GB-ROCHE-1483389

PATIENT
  Age: 66 Year
  Sex: Male
  Weight: 114 kg

DRUGS (3)
  1. RITUXIMAB [Suspect]
     Active Substance: RITUXIMAB
     Indication: RHEUMATOID ARTHRITIS
     Dosage: DATE OF LAST DOSE PRIOR TO SAE WAS TAKEN ON 15/AUG/2013.
     Route: 065
     Dates: start: 20110901
  2. METHOTREXATE [Concomitant]
     Active Substance: METHOTREXATE
  3. SULPHASALAZINE [Concomitant]
     Active Substance: SULFASALAZINE

REACTIONS (2)
  - Testicular pain [Unknown]
  - Abdominal pain [Unknown]

NARRATIVE: CASE EVENT DATE: 20140529
